FAERS Safety Report 5258242-1 (Version None)
Quarter: 2007Q1

REPORT INFORMATION
  Report Type: 
  Country: None (occurrence: None)
  Receive Date: 20070302
  Receipt Date: 20070220
  Transmission Date: 20070707
  Serious: Yes (Other)
  Sender: FDA-Public Use
  Company Number: 2007SP003341

PATIENT
  Age: 38 Year
  Sex: Female
  Weight: 73.9363 kg

DRUGS (3)
  1. TEMODAL [Suspect]
     Indication: OLIGODENDROGLIOMA
     Dosage: SEE IMAGE
     Route: 048
  2. DECADRON [Concomitant]
  3. KYTRIL [Concomitant]

REACTIONS (10)
  - COUGH [None]
  - DIABETES INSIPIDUS [None]
  - DISEASE PROGRESSION [None]
  - HAEMOGLOBIN DECREASED [None]
  - HYPOTHYROIDISM [None]
  - NAUSEA [None]
  - PLATELET COUNT DECREASED [None]
  - RHINORRHOEA [None]
  - SCIATICA [None]
  - VIRAL UPPER RESPIRATORY TRACT INFECTION [None]
